FAERS Safety Report 21700557 (Version 1)
Quarter: 2022Q4

REPORT INFORMATION
  Report Type: Spontaneous
  Country: CO (occurrence: CO)
  Receive Date: 20221208
  Receipt Date: 20221208
  Transmission Date: 20230113
  Serious: Yes (Hospitalization, Other)
  Sender: FDA-Public Use
  Company Number: CO-AMGEN-COLSP2022208954

PATIENT
  Age: 13 Year
  Sex: Male
  Weight: 63 kg

DRUGS (5)
  1. BLINCYTO [Suspect]
     Active Substance: BLINATUMOMAB
     Indication: Acute lymphocytic leukaemia
     Dosage: 5 MICROGRAM, EVERY 24 HOURS
     Route: 040
     Dates: start: 20221126, end: 20221127
  2. ACETAMINOPHEN [Concomitant]
     Active Substance: ACETAMINOPHEN
     Dosage: 500 MILLIGRAM, Q6H
     Route: 048
     Dates: start: 20221126, end: 20221127
  3. DEXAMETHASONE [Concomitant]
     Active Substance: DEXAMETHASONE
     Dosage: 8 MILLIGRAM, UNIQUE
     Route: 040
     Dates: start: 20221126, end: 20221126
  4. MEROPENEM [Concomitant]
     Active Substance: MEROPENEM
     Dosage: 2000 MILLIGRAM, Q8H
     Route: 040
     Dates: start: 20221127, end: 20221129
  5. VANCOMYCIN [Concomitant]
     Active Substance: VANCOMYCIN
     Dosage: 500 MILLIGRAM, Q8H
     Route: 040
     Dates: start: 20221127, end: 20221129

REACTIONS (4)
  - Jaundice [Recovered/Resolved with Sequelae]
  - Hyperbilirubinaemia [Recovered/Resolved with Sequelae]
  - Hypotension [Recovered/Resolved with Sequelae]
  - Disorientation [Recovered/Resolved with Sequelae]

NARRATIVE: CASE EVENT DATE: 20221127
